FAERS Safety Report 20738643 (Version 1)
Quarter: 2022Q2

REPORT INFORMATION
  Report Type: Spontaneous
  Country: US (occurrence: US)
  Receive Date: 20220422
  Receipt Date: 20220422
  Transmission Date: 20220721
  Serious: Yes (Hospitalization)
  Sender: FDA-Public Use
  Company Number: US-drreddys-LIT/USA/22/0149150

PATIENT
  Age: 70 Year
  Sex: Female

DRUGS (5)
  1. DOXORUBICIN HYDROCHLORIDE [Suspect]
     Active Substance: DOXORUBICIN HYDROCHLORIDE
     Indication: Uterine leiomyosarcoma
     Dosage: FIRST LINE
  2. GEMCITABINE [Suspect]
     Active Substance: GEMCITABINE
     Indication: Uterine leiomyosarcoma
     Dosage: SECOND LINE
  3. DOCETAXEL [Suspect]
     Active Substance: DOCETAXEL
     Indication: Uterine leiomyosarcoma
     Dosage: SECOND LINE
  4. OLARATUMAB [Suspect]
     Active Substance: OLARATUMAB
     Indication: Uterine leiomyosarcoma
     Dosage: FIRST LINE
  5. PAZOPANIB [Suspect]
     Active Substance: PAZOPANIB
     Indication: Uterine leiomyosarcoma
     Dosage: 3RD LINE

REACTIONS (3)
  - Inflammatory myofibroblastic tumour [Unknown]
  - Disease progression [Unknown]
  - Drug ineffective [Unknown]
